FAERS Safety Report 26173065 (Version 1)
Quarter: 2025Q4

REPORT INFORMATION
  Report Type: Spontaneous
  Country: RU (occurrence: RU)
  Receive Date: 20251218
  Receipt Date: 20251218
  Transmission Date: 20260117
  Serious: Yes (Life-Threatening, Hospitalization, Other)
  Sender: ALEXION PHARMACEUTICALS
  Company Number: RU-ASTRAZENECA-202512EAF013637RU

PATIENT
  Age: 64 Year
  Sex: Male
  Weight: 75 kg

DRUGS (1)
  1. BRILINTA [Suspect]
     Active Substance: TICAGRELOR
     Indication: Acute myocardial infarction
     Dosage: 90 MILLIGRAM, BID
     Route: 061
     Dates: start: 20251118, end: 20251127

REACTIONS (1)
  - Vascular stent thrombosis [Recovering/Resolving]

NARRATIVE: CASE EVENT DATE: 20251127
